FAERS Safety Report 25358360 (Version 2)
Quarter: 2025Q3

REPORT INFORMATION
  Report Type: Report from Study
  Country: US (occurrence: US)
  Receive Date: 20250526
  Receipt Date: 20250708
  Transmission Date: 20251021
  Serious: No
  Sender: MALLINCKRODT
  Company Number: US-MALLINCKRODT-MNK202503114

PATIENT
  Age: 39 Year
  Sex: Female

DRUGS (5)
  1. CORTICOTROPIN [Suspect]
     Active Substance: CORTICOTROPIN
     Indication: Uveitis
     Dosage: 80 UNITS
     Route: 058
     Dates: start: 20250517
  2. METHOTREXATE [Concomitant]
     Active Substance: METHOTREXATE
  3. LEUCOVORIN [Concomitant]
     Active Substance: LEUCOVORIN\LEUCOVORIN CALCIUM
  4. TIMOLOL [Concomitant]
     Active Substance: TIMOLOL
  5. DORZOLAMIDE [Concomitant]
     Active Substance: DORZOLAMIDE

REACTIONS (4)
  - Injection site warmth [Recovering/Resolving]
  - Insomnia [Unknown]
  - Injection site bruising [Recovered/Resolved]
  - Injection site irritation [Recovered/Resolved]

NARRATIVE: CASE EVENT DATE: 20250101
